FAERS Safety Report 4721276-7 (Version None)
Quarter: 2005Q3

REPORT INFORMATION
  Report Type: 
  Country: None (occurrence: None)
  Receive Date: 20050721
  Receipt Date: 20021014
  Transmission Date: 20060218
  Serious: No
  Sender: FDA-Public Use
  Company Number: US-BRISTOL-MYERS SQUIBB COMPANY-12076899

PATIENT
  Sex: Female
  Weight: 63 kg

DRUGS (6)
  1. COUMADIN [Interacting]
     Indication: TRANSIENT ISCHAEMIC ATTACK
     Dosage: 5-6 MG
     Dates: start: 19850101
  2. FLU VACCINE [Suspect]
     Indication: INFLUENZA IMMUNISATION
  3. GARLIC [Interacting]
     Route: 048
  4. AUGMENTIN '125' [Concomitant]
  5. LIPITOR [Concomitant]
  6. AVAPRO [Concomitant]

REACTIONS (4)
  - COUGH [None]
  - FOOD INTERACTION [None]
  - INTERNATIONAL NORMALISED RATIO FLUCTUATION [None]
  - NASOPHARYNGITIS [None]
